FAERS Safety Report 6782192-2 (Version None)
Quarter: 2010Q2

REPORT INFORMATION
  Report Type: 
  Country: None (occurrence: None)
  Receive Date: 20100621
  Receipt Date: 20100616
  Transmission Date: 20101027
  Serious: Yes (Death)
  Sender: FDA-Public Use
  Company Number: KR-ASTRAZENECA-2010SE28017

PATIENT
  Age: 21850 Day
  Sex: Female
  Weight: 57.2 kg

DRUGS (1)
  1. IRESSA [Suspect]
     Indication: NON-SMALL CELL LUNG CANCER
     Route: 048
     Dates: start: 20040602, end: 20040604

REACTIONS (2)
  - DYSPNOEA [None]
  - PNEUMONIA [None]
